FAERS Safety Report 25526507 (Version 1)
Quarter: 2025Q3

REPORT INFORMATION
  Report Type: Report from Study
  Country: CO (occurrence: CO)
  Receive Date: 20250707
  Receipt Date: 20250707
  Transmission Date: 20251021
  Serious: Yes (Other)
  Sender: UCB
  Company Number: CO-UCBSA-2025040839

PATIENT
  Age: 75 Year
  Sex: Male

DRUGS (1)
  1. ROTIGOTINE [Suspect]
     Active Substance: ROTIGOTINE
     Indication: Parkinson^s disease
     Dosage: 04 MILLIGRAM, ONCE DAILY (QD)
     Route: 062
     Dates: start: 20250623, end: 20250623

REACTIONS (3)
  - Presyncope [Recovered/Resolved]
  - Yellow skin [Recovered/Resolved]
  - Dizziness [Recovered/Resolved]

NARRATIVE: CASE EVENT DATE: 20250623
